FAERS Safety Report 4606963-3 (Version None)
Quarter: 2005Q1

REPORT INFORMATION
  Report Type: 
  Country: None (occurrence: None)
  Receive Date: 20050314
  Receipt Date: 20050303
  Transmission Date: 20050727
  Serious: Yes (Other)
  Sender: FDA-Public Use
  Company Number: US-JNJFOC-20041203062

PATIENT
  Sex: Female
  Weight: 105.24 kg

DRUGS (5)
  1. RISPERDAL [Suspect]
     Route: 049
  2. RISPERDAL [Suspect]
     Indication: OBSESSIVE-COMPULSIVE DISORDER
     Route: 049
  3. LITHIUM CARBONATE CAP [Concomitant]
     Route: 049
  4. TOPAMAX [Concomitant]
     Indication: UNEVALUABLE EVENT
     Route: 049
  5. TEGRETOL [Concomitant]
     Route: 049

REACTIONS (14)
  - ABDOMINAL PAIN UPPER [None]
  - ABNORMAL BEHAVIOUR [None]
  - BLOOD GLUCOSE INCREASED [None]
  - BLOOD PROLACTIN INCREASED [None]
  - DEPRESSION [None]
  - DIARRHOEA [None]
  - FATIGUE [None]
  - GLOSSODYNIA [None]
  - IRRITABLE BOWEL SYNDROME [None]
  - MOOD ALTERED [None]
  - PITUITARY TUMOUR [None]
  - POLLAKIURIA [None]
  - TARDIVE DYSKINESIA [None]
  - THIRST [None]
